FAERS Safety Report 6760775-3 (Version None)
Quarter: 2010Q2

REPORT INFORMATION
  Report Type: 
  Country: None (occurrence: None)
  Receive Date: 20100607
  Receipt Date: 20100607
  Transmission Date: 20101027
  Serious: No
  Sender: FDA-Public Use
  Company Number: None

PATIENT
  Age: 53 Year
  Sex: Female

DRUGS (1)
  1. OMEPRAZOLE [Suspect]
     Dosage: TAKE 2 CAPSULES DAILY
     Dates: start: 20100209

REACTIONS (2)
  - ABDOMINAL PAIN UPPER [None]
  - PRODUCT SUBSTITUTION ISSUE [None]
